FAERS Safety Report 5350448-6 (Version None)
Quarter: 2007Q2

REPORT INFORMATION
  Report Type: 
  Country: None (occurrence: None)
  Receive Date: 20070608
  Receipt Date: 20070531
  Transmission Date: 20071010
  Serious: Yes (Death, Other)
  Sender: FDA-Public Use
  Company Number: PHBS2007BE07164

PATIENT
  Age: 51 Year
  Sex: Male

DRUGS (3)
  1. ZOMETA [Suspect]
     Indication: METASTASES TO BONE
     Dates: end: 20060907
  2. RADIOTHERAPY [Concomitant]
  3. AREDIA [Suspect]
     Indication: METASTASES TO BONE

REACTIONS (4)
  - EUTHANASIA [None]
  - ORAL CAVITY FISTULA [None]
  - OSTEONECROSIS [None]
  - PURULENCE [None]
